FAERS Safety Report 12265656 (Version 1)
Quarter: 2016Q2

REPORT INFORMATION
  Report Type: Spontaneous
  Country: US (occurrence: US)
  Receive Date: 20160413
  Receipt Date: 20160413
  Transmission Date: 20160815
  Serious: No
  Sender: FDA-Public Use
  Company Number: GXBR2015US002398

PATIENT
  Sex: Male

DRUGS (1)
  1. KETOCONAZOLE. [Suspect]
     Active Substance: KETOCONAZOLE
     Indication: FUNGAL INFECTION
     Dosage: 2 %, BID
     Route: 061
     Dates: start: 201510

REACTIONS (2)
  - Application site dryness [Not Recovered/Not Resolved]
  - Application site discolouration [Not Recovered/Not Resolved]
